FAERS Safety Report 13273008 (Version 1)
Quarter: 2017Q1

REPORT INFORMATION
  Report Type: Spontaneous
  Country: US (occurrence: US)
  Receive Date: 20170227
  Receipt Date: 20170227
  Transmission Date: 20170428
  Serious: No
  Sender: FDA-Public Use
  Company Number: US-ASTRAZENECA-2017SE18766

PATIENT
  Age: 992 Month
  Sex: Female
  Weight: 71.7 kg

DRUGS (6)
  1. OCUVITE [Concomitant]
     Active Substance: VITAMINS
     Indication: MACULAR DEGENERATION
     Route: 048
  2. BABY ASPIRIN [Concomitant]
     Active Substance: ASPIRIN
     Indication: GENERAL SYMPTOM
     Route: 048
  3. LEVOTHYROXINE. [Concomitant]
     Active Substance: LEVOTHYROXINE
     Indication: THYROID DISORDER
     Route: 048
  4. VITAMIN C [Concomitant]
     Active Substance: ASCORBIC ACID
     Indication: VITAMIN SUPPLEMENTATION
     Route: 048
  5. VITMAIN B12 [Concomitant]
     Indication: VITAMIN SUPPLEMENTATION
     Route: 048
  6. SYMBICORT [Suspect]
     Active Substance: BUDESONIDE\FORMOTEROL FUMARATE DIHYDRATE
     Indication: ASTHMA
     Dosage: 2 PUFFS, TWICE A DAY
     Route: 055
     Dates: start: 201702

REACTIONS (5)
  - Dysgeusia [Unknown]
  - Tremor [Recovered/Resolved]
  - Drug ineffective [Unknown]
  - Anxiety [Unknown]
  - Device malfunction [Unknown]

NARRATIVE: CASE EVENT DATE: 20170215
